FAERS Safety Report 10023561 (Version 3)
Quarter: 2014Q2

REPORT INFORMATION
  Report Type: Spontaneous
  Country: US (occurrence: US)
  Receive Date: 20140320
  Receipt Date: 20140424
  Transmission Date: 20141212
  Serious: No
  Sender: FDA-Public Use
  Company Number: US-009507513-1403USA005829

PATIENT
  Age: 15 Year
  Sex: Female
  Weight: 48.52 kg

DRUGS (3)
  1. NEXPLANON [Suspect]
     Indication: CONTRACEPTION
     Dosage: SINGLE ROD-SHAPED IMPLANT
     Route: 030
     Dates: start: 20140224
  2. NEXPLANON [Suspect]
     Indication: DYSMENORRHOEA
  3. NEXPLANON [Suspect]
     Indication: MENORRHAGIA

REACTIONS (5)
  - Device deployment issue [Not Recovered/Not Resolved]
  - Medical device complication [Recovered/Resolved]
  - Implant site pain [Recovered/Resolved]
  - Incorrect route of drug administration [Unknown]
  - Drug prescribing error [Unknown]
